FAERS Safety Report 13462100 (Version 1)
Quarter: 2017Q2

REPORT INFORMATION
  Report Type: Spontaneous
  Country: US (occurrence: US)
  Receive Date: 20170420
  Receipt Date: 20170420
  Transmission Date: 20170830
  Serious: Yes (Death)
  Sender: FDA-Public Use
  Company Number: None

PATIENT
  Age: 8 Year
  Sex: Male
  Weight: 29.25 kg

DRUGS (1)
  1. CLONIDINE. [Suspect]
     Active Substance: CLONIDINE
     Indication: SENSORY PROCESSING DISORDER
     Route: 048
     Dates: start: 20151031, end: 20151031

REACTIONS (6)
  - Generalised tonic-clonic seizure [None]
  - Overdose [None]
  - Brain oedema [None]
  - Cardiovascular disorder [None]
  - Hallucination [None]
  - Autoimmune haemolytic anaemia [None]

NARRATIVE: CASE EVENT DATE: 20160608
